FAERS Safety Report 17267077 (Version 1)
Quarter: 2020Q1

REPORT INFORMATION
  Report Type: Spontaneous
  Country: CN (occurrence: CN)
  Receive Date: 20200114
  Receipt Date: 20200114
  Transmission Date: 20200409
  Serious: Yes (Life-Threatening)
  Sender: FDA-Public Use
  Company Number: CN-PFIZER INC-2020014447

PATIENT
  Age: 2 Year
  Sex: Male
  Weight: 11 kg

DRUGS (1)
  1. SOLU-MEDROL [Suspect]
     Active Substance: METHYLPREDNISOLONE SODIUM SUCCINATE
     Indication: ASTHMA
     Dosage: 11 MG, 2X/DAY
     Route: 041
     Dates: start: 20191223, end: 20191223

REACTIONS (9)
  - Pallor [Recovering/Resolving]
  - Peripheral coldness [Recovering/Resolving]
  - Pruritus [Recovering/Resolving]
  - Heart rate decreased [Recovering/Resolving]
  - Anaphylactic shock [Recovering/Resolving]
  - Psychomotor hyperactivity [Recovering/Resolving]
  - Rash [Recovering/Resolving]
  - Depressed mood [Recovering/Resolving]
  - Hyperhidrosis [Recovering/Resolving]

NARRATIVE: CASE EVENT DATE: 20191223
